FAERS Safety Report 7632545-5 (Version None)
Quarter: 2011Q3

REPORT INFORMATION
  Report Type: 
  Country: None (occurrence: None)
  Receive Date: 20110725
  Receipt Date: 20101007
  Transmission Date: 20111222
  Serious: No
  Sender: FDA-Public Use
  Company Number: US-BRISTOL-MYERS SQUIBB COMPANY-15323769

PATIENT
  Age: 84 Year
  Sex: Female

DRUGS (3)
  1. COUMADIN [Suspect]
     Dosage: TAKING FROM PAST 1.5 YEARS AGO
  2. PROCARDIA XL [Suspect]
  3. SOTALOL HCL [Suspect]

REACTIONS (1)
  - ALOPECIA [None]
